FAERS Safety Report 9053831 (Version 1)
Quarter: 2013Q1

REPORT INFORMATION
  Report Type: Spontaneous
  Country: US (occurrence: None)
  Receive Date: 20130201
  Receipt Date: 20130201
  Transmission Date: 20140127
  Serious: Yes (Disabling)
  Sender: FDA-Public Use
  Company Number: None

PATIENT
  Age: 74 Year
  Sex: Male
  Weight: 73 kg

DRUGS (1)
  1. CIALIS UNKNOWN LILLY [Suspect]

REACTIONS (2)
  - Deafness neurosensory [None]
  - Drug ineffective [None]
